FAERS Safety Report 15690661 (Version 1)
Quarter: 2018Q4

REPORT INFORMATION
  Report Type: Spontaneous
  Country: SE (occurrence: SE)
  Receive Date: 20181205
  Receipt Date: 20181205
  Transmission Date: 20190205
  Serious: Yes (Hospitalization)
  Sender: FDA-Public Use
  Company Number: SE-TEVA-2018-SE-981859

PATIENT
  Age: 59 Year
  Sex: Male

DRUGS (18)
  1. METFROMIN [Concomitant]
     Route: 065
  2. LOPERAMID [Concomitant]
     Active Substance: LOPERAMIDE
     Route: 065
  3. INNOHEP [Concomitant]
     Active Substance: TINZAPARIN SODIUM
     Route: 065
  4. BETAPRED [Concomitant]
     Active Substance: BETAMETHASONE SODIUM PHOSPHATE
     Route: 065
  5. DOLCONTIN [Concomitant]
     Active Substance: MORPHINE
     Route: 065
  6. ACETYLCYSTEIN [Concomitant]
     Active Substance: ACETYLCYSTEINE
     Route: 065
  7. CANODERM [Concomitant]
     Route: 065
  8. CREON [Concomitant]
     Active Substance: PANCRELIPASE AMYLASE\PANCRELIPASE LIPASE\PANCRELIPASE PROTEASE
     Route: 065
  9. IBUPROFEN. [Concomitant]
     Active Substance: IBUPROFEN
     Route: 065
  10. PACLITAXEL. [Suspect]
     Active Substance: PACLITAXEL
     Indication: PANCREATIC CARCINOMA
     Dosage: DOSERING ^190^
     Route: 042
     Dates: start: 20180302, end: 20181018
  11. PRIMPERAN [Concomitant]
     Active Substance: METOCLOPRAMIDE HYDROCHLORIDE
     Route: 065
  12. BRICANYL [Concomitant]
     Active Substance: TERBUTALINE SULFATE
     Route: 065
  13. MORFIN [Concomitant]
     Active Substance: MORPHINE SULFATE
     Route: 065
  14. GEMCITABINE [Suspect]
     Active Substance: GEMCITABINE\GEMCITABINE HYDROCHLORIDE
     Indication: PANCREATIC CARCINOMA
     Route: 042
     Dates: start: 20180302, end: 20181018
  15. CILAXORAL 7,5 MG/ML ORALA DROPPAR, L?SNING [Concomitant]
     Route: 065
  16. INSULATARD FLEXPEN [Concomitant]
     Active Substance: INSULIN HUMAN
     Route: 065
  17. LAXIDO APELSIN [Concomitant]
     Route: 065
  18. ALVEDON [Concomitant]
     Active Substance: ACETAMINOPHEN
     Route: 065

REACTIONS (1)
  - Haemolytic uraemic syndrome [Recovered/Resolved]

NARRATIVE: CASE EVENT DATE: 20181031
